FAERS Safety Report 6618419-7 (Version None)
Quarter: 2010Q1

REPORT INFORMATION
  Report Type: 
  Country: None (occurrence: None)
  Receive Date: 20100308
  Receipt Date: 20100225
  Transmission Date: 20100710
  Serious: Yes (Hospitalization)
  Sender: FDA-Public Use
  Company Number: B0637766A

PATIENT
  Age: 76 Year
  Sex: Female

DRUGS (3)
  1. VENTOLIN [Suspect]
     Route: 055
     Dates: start: 20091026, end: 20091031
  2. AMOXICILLIN AND CLAVULANATE POTASSIUM [Concomitant]
     Dosage: 1G TWICE PER DAY
     Route: 048
     Dates: start: 20091026
  3. PULMICORT [Concomitant]
     Dosage: 200MCG TWICE PER DAY
     Dates: start: 20091026

REACTIONS (4)
  - ATRIAL FIBRILLATION [None]
  - DYSPNOEA [None]
  - OEDEMA PERIPHERAL [None]
  - PALPITATIONS [None]
